FAERS Safety Report 16636937 (Version 1)
Quarter: 2019Q3

REPORT INFORMATION
  Report Type: Spontaneous
  Country: US (occurrence: US)
  Receive Date: 20190726
  Receipt Date: 20190726
  Transmission Date: 20191004
  Serious: No
  Sender: FDA-Public Use
  Company Number: US-JNJFOC-20190710429

PATIENT
  Sex: Male

DRUGS (3)
  1. INVEGA [Concomitant]
     Active Substance: PALIPERIDONE
     Route: 048
     Dates: start: 20190621
  2. INVEGA SUSTENNA [Suspect]
     Active Substance: PALIPERIDONE PALMITATE
     Indication: PRODUCT USED FOR UNKNOWN INDICATION
     Route: 030
     Dates: start: 20190621
  3. NICOTINE. [Suspect]
     Active Substance: NICOTINE
     Indication: PRODUCT USED FOR UNKNOWN INDICATION
     Route: 065

REACTIONS (20)
  - Muscle twitching [Unknown]
  - Bradyphrenia [Unknown]
  - Feeling abnormal [Unknown]
  - Hallucination [Unknown]
  - Asthenia [Unknown]
  - Rash [Unknown]
  - Dizziness [Unknown]
  - Akathisia [Unknown]
  - Dissociation [Unknown]
  - Hypersomnia [Not Recovered/Not Resolved]
  - Somnolence [Unknown]
  - Feeding disorder [Not Recovered/Not Resolved]
  - Crying [Unknown]
  - Depressed mood [Unknown]
  - Vomiting [Not Recovered/Not Resolved]
  - Weight decreased [Not Recovered/Not Resolved]
  - Refusal of treatment by patient [Unknown]
  - Insomnia [Unknown]
  - Staring [Unknown]
  - Application site discolouration [Unknown]

NARRATIVE: CASE EVENT DATE: 2019
